FAERS Safety Report 25671000 (Version 1)
Quarter: 2025Q3

REPORT INFORMATION
  Report Type: Spontaneous
  Country: US (occurrence: None)
  Receive Date: 20250811
  Receipt Date: 20250811
  Transmission Date: 20251021
  Serious: Yes (Hospitalization)
  Sender: FDA-CTU
  Company Number: None

PATIENT
  Age: 73 Year
  Sex: Male
  Weight: 98.43 kg

DRUGS (12)
  1. FARXIGA [Suspect]
     Active Substance: DAPAGLIFLOZIN PROPANEDIOL
     Indication: Diabetes mellitus
     Dosage: FREQUENCY : DAILY;?OTHER ROUTE : ONLY TOOK CORRECT ONE TIME ;?
     Route: 050
     Dates: start: 20250312, end: 20250313
  2. AMLODIPINE [Concomitant]
     Active Substance: AMLODIPINE BESYLATE
  3. Atirvastatin [Concomitant]
  4. FLONASE [Concomitant]
     Active Substance: FLUTICASONE PROPIONATE
  5. ERGOCALCIFEROL [Concomitant]
     Active Substance: ERGOCALCIFEROL
  6. VITAMIN D2 [Concomitant]
     Active Substance: ERGOCALCIFEROL
  7. INDOMETHACIN [Concomitant]
     Active Substance: INDOMETHACIN
  8. LORATADINE [Concomitant]
     Active Substance: LORATADINE
  9. LOSARTAN [Concomitant]
     Active Substance: LOSARTAN
  10. METFORMIN [Concomitant]
     Active Substance: METFORMIN HYDROCHLORIDE
  11. Olopatadine ophthalmic solution [Concomitant]
  12. SILDENAFIL [Concomitant]
     Active Substance: SILDENAFIL

REACTIONS (3)
  - Prostatitis [None]
  - Urinary tract infection [None]
  - Bacteraemia [None]

NARRATIVE: CASE EVENT DATE: 20250313
